FAERS Safety Report 7513407-0 (Version None)
Quarter: 2011Q2

REPORT INFORMATION
  Report Type: 
  Country: None (occurrence: None)
  Receive Date: 20110526
  Receipt Date: 20110526
  Transmission Date: 20111010
  Serious: Yes (Disabling)
  Sender: FDA-Public Use
  Company Number: None

PATIENT

DRUGS (1)
  1. TRI-LUMA [Suspect]
     Indication: PHOTOSENSITIVITY REACTION
     Dosage: IN 2000 ? THINK

REACTIONS (1)
  - NO THERAPEUTIC RESPONSE [None]
